FAERS Safety Report 26126576 (Version 2)
Quarter: 2025Q4

REPORT INFORMATION
  Report Type: Spontaneous
  Country: HN (occurrence: HN)
  Receive Date: 20251205
  Receipt Date: 20251210
  Transmission Date: 20260118
  Serious: No
  Sender: PFIZER
  Company Number: HN-PFIZER INC-PV202500140981

PATIENT
  Age: 6 Year
  Sex: Female

DRUGS (3)
  1. GENOTROPIN [Suspect]
     Active Substance: SOMATROPIN
     Dosage: 0.8 MG FOR 4 DAYS AND 0.7 MG FOR THE REMAINING 3 DAYS
  2. GENOTROPIN [Suspect]
     Active Substance: SOMATROPIN
     Dosage: 0.8 MG FOR 4 DAYS AND 0.7 MG FOR 3 DAYS
  3. GENOTROPIN [Suspect]
     Active Substance: SOMATROPIN
     Dosage: 0.8 MG FOR 4 DAYS AND 0.7 MG FOR 3 DAYS

REACTIONS (7)
  - Therapy non-responder [Unknown]
  - Drug dose omission by device [Unknown]
  - Expired device used [Unknown]
  - Device mechanical issue [Unknown]
  - Device leakage [Unknown]
  - Device information output issue [Unknown]
  - Device power source issue [Unknown]

NARRATIVE: CASE EVENT DATE: 20250801
